FAERS Safety Report 10459173 (Version 5)
Quarter: 2014Q4

REPORT INFORMATION
  Report Type: Report from Study
  Country: GB (occurrence: GB)
  Receive Date: 20140917
  Receipt Date: 20141107
  Transmission Date: 20150528
  Serious: Yes (Death, Hospitalization)
  Sender: FDA-Public Use
  Company Number: GB-ROCHE-1461807

PATIENT
  Age: 54 Year
  Sex: Male
  Weight: 64.4 kg

DRUGS (15)
  1. TEMAZEPAM. [Concomitant]
     Active Substance: TEMAZEPAM
     Indication: INSOMNIA
     Dosage: SELECT IF ONGOING=NO
     Route: 048
     Dates: start: 201210, end: 201309
  2. CODEINE [Concomitant]
     Active Substance: CODEINE
     Indication: ABDOMINAL PAIN
     Dosage: SELECT IF ONGOING=YES
     Route: 048
     Dates: start: 20130830
  3. METARAMINOL [Concomitant]
     Active Substance: METARAMINOL
     Dosage: SELECT IF ONGOING=NO
     Route: 042
     Dates: start: 20140912, end: 20140912
  4. DALTEPARIN [Concomitant]
     Active Substance: DALTEPARIN
     Dosage: SELECT IF ONGOING=NO
     Route: 058
     Dates: start: 20140911, end: 20140913
  5. GABAPENTIN. [Concomitant]
     Active Substance: GABAPENTIN
     Indication: PAIN
     Dosage: SELECT IF ONGOING=NO
     Route: 048
     Dates: start: 20121125, end: 201312
  6. ZOPICLONE [Concomitant]
     Active Substance: ZOPICLONE
     Indication: SLEEP DISORDER
     Dosage: SELECT IF ONGOING=YES
     Route: 048
     Dates: start: 20140519
  7. NOREPINEPHRINE [Concomitant]
     Active Substance: NOREPINEPHRINE\NOREPINEPHRINE BITARTRATE
     Dosage: SELECT IF ONGOING=NO
     Route: 042
     Dates: start: 20140912, end: 20140913
  8. PROPOFOL. [Concomitant]
     Active Substance: PROPOFOL
     Indication: ANALGESIC THERAPY
     Dosage: SELECT IF ONGOING=NO
     Route: 042
     Dates: start: 20140913, end: 20140913
  9. DALACIN [Concomitant]
     Active Substance: CLINDAMYCIN\CLINDAMYCIN PHOSPHATE
     Indication: RASH
     Dosage: SELECT IF ONGOING=YES
     Route: 061
     Dates: start: 20140115
  10. VEMURAFENIB [Suspect]
     Active Substance: VEMURAFENIB
     Indication: METASTATIC MALIGNANT MELANOMA
     Dosage: MOST RECENT DOSE : 09/JUL/2014, 11/SEP/2014
     Route: 048
     Dates: start: 20130704
  11. AMLODIPINE [Concomitant]
     Active Substance: AMLODIPINE BESYLATE
     Indication: HYPERTENSION
     Dosage: SELECT IF ONGOING=YES
     Route: 048
     Dates: start: 201208
  12. COBIMETINIB [Suspect]
     Active Substance: COBIMETINIB
     Indication: METASTATIC MALIGNANT MELANOMA
     Route: 048
     Dates: start: 20130704, end: 20140911
  13. RAMIPRIL. [Concomitant]
     Active Substance: RAMIPRIL
     Indication: HYPERTENSION
     Dosage: SELECT IF ONGOING=YES
     Route: 048
     Dates: start: 201208
  14. DOUBLEBASE GEL [Concomitant]
     Indication: RASH
     Dosage: SELECT IF ONGOING=YES
     Route: 061
     Dates: start: 20140115
  15. CO-AMOXICLAV [Concomitant]
     Active Substance: AMOXICILLIN\CLAVULANIC ACID
     Indication: FEBRILE INFECTION
     Route: 048
     Dates: start: 20140519, end: 20140524

REACTIONS (3)
  - Clostridium difficile colitis [Fatal]
  - Clostridium difficile infection [Recovered/Resolved]
  - Clostridium difficile colitis [Recovered/Resolved]

NARRATIVE: CASE EVENT DATE: 20140611
